FAERS Safety Report 14392310 (Version 2)
Quarter: 2018Q1

REPORT INFORMATION
  Report Type: Spontaneous
  Country: US (occurrence: US)
  Receive Date: 20180116
  Receipt Date: 20180201
  Transmission Date: 20180509
  Serious: Yes (Hospitalization, Other)
  Sender: FDA-Public Use
  Company Number: US-GLAXOSMITHKLINE-US2018005138

PATIENT
  Age: 74 Year
  Sex: Female
  Weight: 49.89 kg

DRUGS (10)
  1. VITAMIN C [Concomitant]
     Active Substance: ASCORBIC ACID
  2. INCRUSE ELLIPTA [Suspect]
     Active Substance: UMECLIDINIUM BROMIDE
     Indication: CHRONIC OBSTRUCTIVE PULMONARY DISEASE
     Dosage: 1 PUFF(S), UNK
     Dates: start: 201604
  3. INCRUSE ELLIPTA [Suspect]
     Active Substance: UMECLIDINIUM BROMIDE
     Indication: BRONCHITIS
  4. ELIQUIS [Concomitant]
     Active Substance: APIXABAN
  5. VERAPAMIL [Concomitant]
     Active Substance: VERAPAMIL HYDROCHLORIDE
  6. TOPROL XL [Concomitant]
     Active Substance: METOPROLOL SUCCINATE
  7. FLAGYL [Suspect]
     Active Substance: METRONIDAZOLE\METRONIDAZOLE HYDROCHLORIDE
     Dosage: UNK UNK, U
  8. CALCIUM [Concomitant]
     Active Substance: CALCIUM
  9. LUNESTA [Concomitant]
     Active Substance: ESZOPICLONE
  10. XANAX [Concomitant]
     Active Substance: ALPRAZOLAM

REACTIONS (15)
  - Thrombosis [Recovered/Resolved]
  - Blood pressure increased [Unknown]
  - Underdose [Unknown]
  - Cough [Unknown]
  - Productive cough [Unknown]
  - Sputum discoloured [Unknown]
  - Deep vein thrombosis [Unknown]
  - Treatment noncompliance [Unknown]
  - Atrial fibrillation [Unknown]
  - Drug dose omission [Recovered/Resolved]
  - Chronic obstructive pulmonary disease [Unknown]
  - Sinusitis [Unknown]
  - Pulmonary embolism [Unknown]
  - Clostridium difficile infection [Unknown]
  - Oxygen therapy [Unknown]

NARRATIVE: CASE EVENT DATE: 201701
